FAERS Safety Report 7592015-X (Version None)
Quarter: 2011Q3

REPORT INFORMATION
  Report Type: 
  Country: None (occurrence: None)
  Receive Date: 20110705
  Receipt Date: 20110705
  Transmission Date: 20111222
  Serious: Yes (Other)
  Sender: FDA-Public Use
  Company Number: None

PATIENT
  Age: 49 Year
  Sex: Female
  Weight: 62.65 kg

DRUGS (9)
  1. CRESTOR [Concomitant]
  2. TYLENOL (CAPLET) [Concomitant]
  3. ASCORBIC ACID [Concomitant]
  4. VITAMIN D [Concomitant]
  5. WARFARIN SODIUM [Suspect]
     Indication: AORTIC VALVE REPLACEMENT
     Dosage: 5MG (1/2 TO 1 TABLET) DAILY BY MOUTH
     Route: 048
     Dates: start: 20110602, end: 20110625
  6. PEPCID AC [Concomitant]
  7. METOPROLOL SUCCINATE EXTENDED RELEASE [Concomitant]
  8. HYDROCHLOROTHIAZIDE [Concomitant]
  9. LEVOTHYROXINE SODIUM [Concomitant]

REACTIONS (4)
  - PRODUCT SUBSTITUTION ISSUE [None]
  - INCISION SITE PRURITUS [None]
  - URTICARIA [None]
  - DRUG HYPERSENSITIVITY [None]
